FAERS Safety Report 7250741-6 (Version None)
Quarter: 2011Q1

REPORT INFORMATION
  Report Type: 
  Country: None (occurrence: None)
  Receive Date: 20110121
  Receipt Date: 20110121
  Transmission Date: 20110831
  Serious: No
  Sender: FDA-Public Use
  Company Number: None

PATIENT
  Age: 53 Year
  Sex: Female
  Weight: 58.9676 kg

DRUGS (1)
  1. TRIAD STERILE ALCOHOL PREP PADS ALCOHOL 70% V/V TRIAD CAT. N10-3101. [Suspect]
     Indication: PRODUCT QUALITY ISSUE
     Dosage: 1 PAD DAILY OTHER
     Route: 050

REACTIONS (1)
  - PRODUCT QUALITY ISSUE [None]
